FAERS Safety Report 5094845-5 (Version None)
Quarter: 2006Q3

REPORT INFORMATION
  Report Type: 
  Country: None (occurrence: None)
  Receive Date: 20060901
  Receipt Date: 20060828
  Transmission Date: 20061208
  Serious: Yes (Other)
  Sender: FDA-Public Use
  Company Number: SG-RB-3813-2006

PATIENT
  Sex: Male

DRUGS (2)
  1. BUPRENORPHINE HCL [Suspect]
  2. MIDAZOLAM HYDROCHLORIDE [Concomitant]

REACTIONS (1)
  - PARALYSIS [None]
